FAERS Safety Report 13321185 (Version 1)
Quarter: 2017Q1

REPORT INFORMATION
  Report Type: Spontaneous
  Country: US (occurrence: US)
  Receive Date: 20170309
  Receipt Date: 20170309
  Transmission Date: 20170428
  Serious: Yes (Other)
  Sender: FDA-Public Use
  Company Number: US-TAKEDA-2017TUS005058

PATIENT
  Age: 38 Year
  Sex: Male

DRUGS (2)
  1. ULORIC [Suspect]
     Active Substance: FEBUXOSTAT
     Indication: HYPERURICAEMIA
     Dosage: 40 MG, QD
     Route: 048
  2. ULORIC [Suspect]
     Active Substance: FEBUXOSTAT
     Dosage: 80 MG, QD
     Route: 048

REACTIONS (4)
  - Chest pain [Not Recovered/Not Resolved]
  - Gout [Recovered/Resolved]
  - Oesophageal spasm [Not Recovered/Not Resolved]
  - Prinzmetal angina [Not Recovered/Not Resolved]
